FAERS Safety Report 24867154 (Version 1)
Quarter: 2025Q1

REPORT INFORMATION
  Report Type: Spontaneous
  Country: US (occurrence: None)
  Receive Date: 20250117
  Receipt Date: 20250117
  Transmission Date: 20250409
  Serious: No
  Sender: FDA-CTU
  Company Number: None

PATIENT
  Age: 62 Year
  Sex: Male

DRUGS (1)
  1. AMBRISENTAN [Suspect]
     Active Substance: AMBRISENTAN
     Indication: Pulmonary hypertension
     Dosage: 5MG QD ORAL?
     Route: 048
     Dates: start: 20241120, end: 20241125

REACTIONS (4)
  - Rash pruritic [None]
  - Insomnia [None]
  - Rash [None]
  - Rash [None]

NARRATIVE: CASE EVENT DATE: 20241125
